FAERS Safety Report 8872247 (Version 1)
Quarter: 2012Q4

REPORT INFORMATION
  Report Type: Report from Study
  Country: CA (occurrence: CA)
  Receive Date: 20121030
  Receipt Date: 20121030
  Transmission Date: 20130627
  Serious: Yes (Other)
  Sender: FDA-Public Use
  Company Number: CA-JNJFOC-20121010215

PATIENT
  Sex: Female
  Weight: 77.6 kg

DRUGS (5)
  1. REMICADE [Suspect]
     Indication: CROHN^S DISEASE
     Route: 042
     Dates: start: 20070817
  2. METFORMIN [Concomitant]
     Route: 065
  3. COVERSYL [Concomitant]
     Route: 065
  4. LIPITOR [Concomitant]
     Route: 065
  5. APO-CHLORTHALIDONE [Concomitant]
     Route: 065

REACTIONS (2)
  - Breast cyst [Not Recovered/Not Resolved]
  - Post procedural infection [Not Recovered/Not Resolved]
